FAERS Safety Report 4804273-2 (Version None)
Quarter: 2005Q4

REPORT INFORMATION
  Report Type: 
  Country: None (occurrence: None)
  Receive Date: 20051020
  Receipt Date: 20051005
  Transmission Date: 20060501
  Serious: Yes (Other)
  Sender: FDA-Public Use
  Company Number: US-KINGPHARMUSA00001-K200501325

PATIENT
  Sex: Female

DRUGS (8)
  1. KEMADRIN [Suspect]
     Indication: ANXIETY DISORDER
     Dosage: 15 MG, QD
     Route: 048
     Dates: start: 20050101, end: 20050425
  2. KEMADRIN [Suspect]
     Dosage: 5 MG, QD
     Dates: start: 20050426
  3. ZYPREXA [Suspect]
     Indication: ANXIETY DISORDER
     Dosage: 5 MG, QD
     Route: 048
     Dates: start: 20050421
  4. CIPRALEX                                /DEN/ [Suspect]
     Indication: ANXIETY DISORDER
     Dosage: 10 MG, QD
     Route: 048
     Dates: start: 20050426
  5. CIPRALEX                                /DEN/ [Suspect]
     Dosage: 30 MG, QD
     Route: 048
     Dates: end: 20050425
  6. MIDAZOLAM HCL [Suspect]
     Dosage: 15 MG, QD
     Route: 048
     Dates: start: 20050426
  7. MIDAZOLAM HCL [Suspect]
     Dosage: 30 MG, QD
     Dates: start: 20040101, end: 20050425
  8. VALIUM FOR INJECTION [Suspect]
     Indication: MUSCLE TWITCHING
     Dosage: 10 MG, UNK
     Route: 042
     Dates: start: 20050428, end: 20050428

REACTIONS (3)
  - DIZZINESS [None]
  - LOSS OF CONSCIOUSNESS [None]
  - MYOCLONUS [None]
